FAERS Safety Report 11828768 (Version 2)
Quarter: 2015Q4

REPORT INFORMATION
  Report Type: Spontaneous
  Country: RU (occurrence: RU)
  Receive Date: 20151211
  Receipt Date: 20151224
  Transmission Date: 20160305
  Serious: Yes (Hospitalization, Other)
  Sender: FDA-Public Use
  Company Number: RU-BRISTOL-MYERS SQUIBB COMPANY-BMS-2015-085922

PATIENT
  Age: 46 Year
  Sex: Male
  Weight: 108 kg

DRUGS (1)
  1. METFORMIN HYDROCHLORIDE. [Suspect]
     Active Substance: METFORMIN HYDROCHLORIDE
     Indication: TYPE 2 DIABETES MELLITUS
     Dosage: 1000 MG, UNK
     Route: 065
     Dates: start: 2013

REACTIONS (4)
  - Dyslipidaemia [Recovering/Resolving]
  - Non-alcoholic steatohepatitis [Recovering/Resolving]
  - Hypertension [Unknown]
  - Obesity [Recovering/Resolving]
